FAERS Safety Report 15778274 (Version 1)
Quarter: 2018Q4

REPORT INFORMATION
  Report Type: Spontaneous
  Country: US (occurrence: US)
  Receive Date: 20181231
  Receipt Date: 20181231
  Transmission Date: 20190205
  Serious: No
  Sender: FDA-Public Use
  Company Number: US-BAYER-2018-242942

PATIENT
  Sex: Male
  Weight: 118 kg

DRUGS (4)
  1. CLARITIN [Suspect]
     Active Substance: LORATADINE
     Indication: NASOPHARYNGITIS
  2. VITAMIN D [Concomitant]
     Active Substance: CHOLECALCIFEROL
     Dosage: UNK
  3. CLARITIN [Suspect]
     Active Substance: LORATADINE
     Indication: HYPERSENSITIVITY
     Dosage: 1 DF, QD,1 TEASPOONFUL
     Route: 048
     Dates: end: 20181220
  4. ASTHMA [EPHEDRINE HYDROCHLORIDE] [Concomitant]
     Dosage: UNK

REACTIONS (2)
  - Underdose [Unknown]
  - Therapeutic response unexpected [Unknown]
